FAERS Safety Report 4882701-4 (Version None)
Quarter: 2006Q1

REPORT INFORMATION
  Report Type: 
  Country: None (occurrence: None)
  Receive Date: 20060113
  Receipt Date: 20060104
  Transmission Date: 20060701
  Serious: Yes (Hospitalization, Disabling)
  Sender: FDA-Public Use
  Company Number: 216528

PATIENT
  Age: 62 Year
  Sex: Female
  Weight: 72 kg

DRUGS (8)
  1. EFALIZUMAB (EFALIZUMAB) PWDR + SOLVENT, INJECTION SOLN, 125MG [Suspect]
     Indication: PSORIASIS
     Dosage: 1 MG/KG, 1/WEEK, SUBCUTANEOUS
     Route: 058
     Dates: start: 20050309, end: 20050720
  2. NEXIUM [Concomitant]
  3. WELLBUTRIN XL [Concomitant]
  4. VITAMIN E [Concomitant]
  5. CENTRUM SILVER (MINERALS NOS, MULTIVITAMINS NOS) [Concomitant]
  6. DOVONEX [Concomitant]
  7. BIAXIN XL [Concomitant]
  8. FLONASE [Concomitant]

REACTIONS (27)
  - ALANINE AMINOTRANSFERASE INCREASED [None]
  - ANOREXIA [None]
  - ASPARTATE AMINOTRANSFERASE INCREASED [None]
  - BACTERIURIA [None]
  - BIOPSY BONE MARROW ABNORMAL [None]
  - BLOOD ALKALINE PHOSPHATASE INCREASED [None]
  - BLOOD CREATININE INCREASED [None]
  - CANDIDIASIS [None]
  - CHILLS [None]
  - DIARRHOEA [None]
  - DRUG EFFECT DECREASED [None]
  - ENTEROCOCCAL INFECTION [None]
  - EOSINOPHIL PERCENTAGE INCREASED [None]
  - FATIGUE [None]
  - HEADACHE [None]
  - IRON DEFICIENCY ANAEMIA [None]
  - LIPOMA [None]
  - NAUSEA [None]
  - NIGHT SWEATS [None]
  - NORMOCHROMIC NORMOCYTIC ANAEMIA [None]
  - PERIPHERAL T-CELL LYMPHOMA UNSPECIFIED [None]
  - PYREXIA [None]
  - SEPSIS [None]
  - SINUSITIS [None]
  - SPUTUM CULTURE POSITIVE [None]
  - URINE LEUKOCYTE ESTERASE POSITIVE [None]
  - WEIGHT DECREASED [None]
